FAERS Safety Report 21554472 (Version 10)
Quarter: 2023Q4

REPORT INFORMATION
  Report Type: Spontaneous
  Country: US (occurrence: US)
  Receive Date: 20221104
  Receipt Date: 20231218
  Transmission Date: 20240110
  Serious: No
  Sender: FDA-Public Use
  Company Number: US-PFIZER INC-2020287970

PATIENT
  Age: 79 Year
  Sex: Male
  Weight: 68.027 kg

DRUGS (5)
  1. EUCRISA [Suspect]
     Active Substance: CRISABOROLE
     Indication: Psoriasis
     Dosage: UNK, DAILY (60G TUBE; APPLY TO AFFECTED AREA QD)
     Route: 061
  2. EUCRISA [Suspect]
     Active Substance: CRISABOROLE
     Dosage: UNK, 2-3X DAILY
     Route: 061
  3. EUCRISA [Suspect]
     Active Substance: CRISABOROLE
     Dosage: APPLY TO AFFECTED AREA DAILY
     Route: 061
  4. EUCRISA [Suspect]
     Active Substance: CRISABOROLE
     Dosage: UNK (TO BOTH FEET, EYEBROWS, HAIRLINE 1-3X DAILY)
     Route: 061
  5. EUCRISA [Suspect]
     Active Substance: CRISABOROLE
     Dosage: APPLY TO BOTH FEET, EYEBROWS AND HAIRLINE 2 TO 3 TIMES A DAY
     Route: 061

REACTIONS (5)
  - Off label use [Unknown]
  - Skin disorder [Unknown]
  - Rash [Unknown]
  - Disease recurrence [Unknown]
  - Psoriasis [Unknown]
